FAERS Safety Report 18048798 (Version 1)
Quarter: 2020Q3

REPORT INFORMATION
  Report Type: Spontaneous
  Country: FR (occurrence: FR)
  Receive Date: 20200721
  Receipt Date: 20200721
  Transmission Date: 20201103
  Serious: Yes (Other)
  Sender: FDA-Public Use
  Company Number: FR-CADILA HEALTHCARE LIMITED-FR-ZYDUS-022935

PATIENT

DRUGS (3)
  1. IRBESARTAN. [Suspect]
     Active Substance: IRBESARTAN
     Indication: CONGENITAL CYSTIC KIDNEY DISEASE
     Dosage: 150 MILLIGRAM,150 MG, DAILY,(INTERVAL :1 DAYS)
     Route: 048
     Dates: start: 20170731
  2. TOLVAPTAN [Suspect]
     Active Substance: TOLVAPTAN
     Indication: CONGENITAL CYSTIC KIDNEY DISEASE
     Dosage: 45 MILLIGRAM,45 MG, QD (IN MORNING),(INTERVAL :1 DAYS)
     Route: 048
     Dates: start: 20171211, end: 20180319
  3. TOLVAPTAN [Suspect]
     Active Substance: TOLVAPTAN
     Indication: CONGENITAL CYSTIC KIDNEY DISEASE
     Dosage: 15 MILLIGRAM,15 MG, QD (IN MORNING),(INTERVAL :1 DAYS)
     Route: 048
     Dates: start: 20171211, end: 20180319

REACTIONS (2)
  - Renal impairment [Not Recovered/Not Resolved]
  - Creatinine renal clearance increased [Recovering/Resolving]

NARRATIVE: CASE EVENT DATE: 20171226
